FAERS Safety Report 13933295 (Version 1)
Quarter: 2017Q3

REPORT INFORMATION
  Report Type: Report from Study
  Country: CN (occurrence: CN)
  Receive Date: 20170904
  Receipt Date: 20170904
  Transmission Date: 20171127
  Serious: Yes (Death)
  Sender: FDA-Public Use
  Company Number: CN-ASTRAZENECA-2017SE90118

PATIENT
  Age: 25673 Day
  Sex: Female
  Weight: 52 kg

DRUGS (1)
  1. TAGRISSO [Suspect]
     Active Substance: OSIMERTINIB
     Indication: NON-SMALL CELL LUNG CANCER
     Route: 048
     Dates: start: 20160525, end: 20170828

REACTIONS (1)
  - Death [Fatal]

NARRATIVE: CASE EVENT DATE: 20170828
